FAERS Safety Report 13292674 (Version 3)
Quarter: 2017Q1

REPORT INFORMATION
  Report Type: Spontaneous
  Country: IT (occurrence: IT)
  Receive Date: 20170303
  Receipt Date: 20170320
  Transmission Date: 20170428
  Serious: Yes (Hospitalization)
  Sender: FDA-Public Use
  Company Number: IT-PFIZER INC-2017095728

PATIENT
  Age: 57 Year
  Sex: Male

DRUGS (6)
  1. OLANZAPINE. [Suspect]
     Active Substance: OLANZAPINE
     Dosage: 7 DF, TOTAL
     Route: 048
     Dates: start: 20161018, end: 20161018
  2. TAVOR (LORAZEPAM) [Suspect]
     Active Substance: LORAZEPAM
     Dosage: 16 DF, TOTAL
     Route: 048
     Dates: start: 20161018, end: 20161018
  3. VALDORM /00246102/ [Suspect]
     Active Substance: FLURAZEPAM HYDROCHLORIDE
     Dosage: 30 DF, TOTAL
     Route: 048
     Dates: start: 20161018, end: 20161018
  4. TALOFEN [Suspect]
     Active Substance: PROMAZINE HYDROCHLORIDE
     Dosage: UNK
     Route: 048
     Dates: start: 20161018, end: 20161018
  5. SERTRALINE HCL [Suspect]
     Active Substance: SERTRALINE HYDROCHLORIDE
     Dosage: 6 DF, TOTAL
     Route: 048
     Dates: start: 20161018, end: 20161018
  6. QUETIAPINE FUMARATE. [Suspect]
     Active Substance: QUETIAPINE FUMARATE
     Dosage: 10 DF, TOTAL
     Route: 048
     Dates: start: 20161018, end: 20161018

REACTIONS (4)
  - Drug abuse [Unknown]
  - Intentional self-injury [Unknown]
  - Bradyphrenia [Unknown]
  - Communication disorder [Unknown]

NARRATIVE: CASE EVENT DATE: 20161018
